FAERS Safety Report 5884555-6 (Version None)
Quarter: 2008Q3

REPORT INFORMATION
  Report Type: 
  Country: None (occurrence: None)
  Receive Date: 20080916
  Receipt Date: 20080909
  Transmission Date: 20090109
  Serious: Yes (Other)
  Sender: FDA-Public Use
  Company Number: PHEH2008US08016

PATIENT
  Sex: Male

DRUGS (8)
  1. ZOMETA [Suspect]
     Indication: MULTIPLE MYELOMA
  2. IBUPROFEN [Concomitant]
  3. CEPHALEXIN [Concomitant]
     Dosage: UNK
     Dates: start: 20050601
  4. CLINDAMYCIN HCL [Concomitant]
     Dosage: UNK
     Dates: start: 20041201
  5. AMARYL [Concomitant]
     Dosage: 4 MG
  6. ZANTAC [Concomitant]
  7. PENICILLIN VK [Concomitant]
     Dosage: 250 MG
     Dates: start: 20041201
  8. METHYLPREDNISOLONE 16MG TAB [Concomitant]

REACTIONS (14)
  - ARTHRITIS [None]
  - BIOPSY GINGIVAL [None]
  - BONE DISORDER [None]
  - BONE LESION EXCISION [None]
  - CARDIAC MURMUR [None]
  - DEBRIDEMENT [None]
  - DENTAL OPERATION [None]
  - DENTAL TREATMENT [None]
  - IMPAIRED HEALING [None]
  - MOUTH HAEMORRHAGE [None]
  - OSTEONECROSIS [None]
  - PAIN [None]
  - TOOTH EXTRACTION [None]
  - TYPE 2 DIABETES MELLITUS [None]
